FAERS Safety Report 4504117-2 (Version None)
Quarter: 2004Q4

REPORT INFORMATION
  Report Type: 
  Country: None (occurrence: None)
  Receive Date: 20041118
  Receipt Date: 20041109
  Transmission Date: 20050328
  Serious: Yes (Hospitalization)
  Sender: FDA-Public Use
  Company Number: GB-ABBOTT-04P-167-0280476-00

PATIENT
  Age: 15 Year
  Sex: Female

DRUGS (15)
  1. CLARITHROMYCIN [Suspect]
     Indication: ASTHMA
  2. CLARITHROMYCIN [Suspect]
  3. CLARITHROMYCIN [Suspect]
  4. PREDNISONE [Suspect]
     Indication: ASTHMA
  5. PREDNISONE [Suspect]
     Dosage: 40-80MG
     Route: 048
  6. PREDNISONE [Suspect]
     Dosage: TO TAPER WITHIN TWO DAYS OF DISCHARGE
     Route: 048
  7. PREDNISONE [Suspect]
  8. PREDNISONE [Suspect]
  9. METHYLPREDNISOLONE [Concomitant]
     Indication: ASTHMA
     Route: 042
  10. CLOXACILLIN [Concomitant]
     Indication: ASTHMA
  11. RANITIDINE [Concomitant]
     Indication: ASTHMA
  12. SALBUTAMOL [Concomitant]
     Indication: ASTHMA
     Dosage: 1-2 PUFFS
     Route: 055
  13. IPRATROPIUM BROMIDE [Concomitant]
     Indication: ASTHMA
     Route: 055
  14. FLUTICASONE PROPIONATE [Concomitant]
     Indication: DRUG USE FOR UNKNOWN INDICATION
  15. CANNABIS [Concomitant]
     Indication: DRUG USE FOR UNKNOWN INDICATION

REACTIONS (8)
  - ASTHMA [None]
  - BIPOLAR DISORDER [None]
  - DELUSION [None]
  - DRUG INTERACTION POTENTIATION [None]
  - HALLUCINATIONS, MIXED [None]
  - LOGORRHOEA [None]
  - MANIA [None]
  - THINKING ABNORMAL [None]
